FAERS Safety Report 15973020 (Version 1)
Quarter: 2019Q1

REPORT INFORMATION
  Report Type: Spontaneous
  Country: IT (occurrence: IT)
  Receive Date: 20190216
  Receipt Date: 20190216
  Transmission Date: 20190418
  Serious: Yes (Hospitalization)
  Sender: FDA-Public Use
  Company Number: IT-ACCORD-107926

PATIENT
  Age: 53 Year
  Sex: Male
  Weight: 90 kg

DRUGS (2)
  1. DEPAKIN [Suspect]
     Active Substance: VALPROATE SODIUM
     Route: 048
     Dates: start: 20180421, end: 20180421
  2. AMLODIPINE [Suspect]
     Active Substance: AMLODIPINE BESYLATE
     Route: 048
     Dates: start: 20180421, end: 20180421

REACTIONS (5)
  - Bradycardia [Unknown]
  - Shock [Unknown]
  - Intentional overdose [Unknown]
  - Generalised tonic-clonic seizure [Unknown]
  - Drug abuse [Unknown]

NARRATIVE: CASE EVENT DATE: 20180421
